FAERS Safety Report 5526152-8 (Version None)
Quarter: 2007Q4

REPORT INFORMATION
  Report Type: 
  Country: None (occurrence: None)
  Receive Date: 20071120
  Receipt Date: 20071105
  Transmission Date: 20080405
  Serious: Yes (Other)
  Sender: FDA-Public Use
  Company Number: 2007335341

PATIENT
  Age: 17 Year
  Sex: Male

DRUGS (5)
  1. IBUPROFEN [Suspect]
     Indication: DRUG USE FOR UNKNOWN INDICATION
     Dosage: 20 DOSE (S) (1 IN 1 D TOTAL), ORAL
     Route: 048
     Dates: start: 20071105, end: 20071105
  2. DIPHENHYDRAMINE HCL [Suspect]
     Indication: DRUG USE FOR UNKNOWN INDICATION
     Dosage: 16 DOSE (S) (1 IN 1 TOTAL), ORAL
     Route: 048
     Dates: start: 20071105, end: 20071105
  3. ACETYLSALICYLIC ACID SRT [Suspect]
     Indication: DRUG USE FOR UNKNOWN INDICATION
     Dosage: 30 DOSE (S) (1 IN 1 TOTAL), ORAL
     Route: 048
     Dates: start: 20071105, end: 20071105
  4. ACETAMINOPHEN [Suspect]
     Indication: DRUG USE FOR UNKNOWN INDICATION
     Dosage: 39 DOSE (S) (1 IN 1 TOTAL), ORAL
     Route: 048
     Dates: start: 20071105, end: 20071105
  5. METAMIZOLE (METAIZOLE) [Suspect]
     Indication: DRUG USE FOR UNKNOWN INDICATION
     Dosage: 20 DOSE (S), 1 IN 1 TOTAL, ORAL
     Dates: start: 20071105, end: 20071105

REACTIONS (5)
  - DIZZINESS [None]
  - MULTIPLE DRUG OVERDOSE INTENTIONAL [None]
  - SOMNOLENCE [None]
  - SUICIDE ATTEMPT [None]
  - VOMITING [None]
